FAERS Safety Report 15240137 (Version 1)
Quarter: 2018Q4

REPORT INFORMATION
  Report Type: Other
  Country: PH (occurrence: PH)
  Receive Date: 20180803
  Receipt Date: 20180803
  Transmission Date: 20190204
  Serious: Yes (Hospitalization)
  Sender: FDA-Public Use
  Company Number: PH-GENUS_LIFESCIENCES-USA-POI0580201800099

PATIENT
  Age: 34 Year
  Sex: Male

DRUGS (2)
  1. LEVOLET (LEVOTHYROXINE) [Suspect]
     Active Substance: LEVOTHYROXINE
     Indication: ATRIOVENTRICULAR BLOCK
     Dates: start: 2017
  2. LEVOLET (LEVOTHYROXINE) [Suspect]
     Active Substance: LEVOTHYROXINE
     Indication: HYPOTHYROIDISM

REACTIONS (1)
  - Mania [Recovered/Resolved]

NARRATIVE: CASE EVENT DATE: 20170128
